FAERS Safety Report 5360697-9 (Version None)
Quarter: 2007Q2

REPORT INFORMATION
  Report Type: 
  Country: None (occurrence: None)
  Receive Date: 20070530
  Receipt Date: 20070129
  Transmission Date: 20071010
  Serious: No
  Sender: FDA-Public Use
  Company Number: 2007PV029224

PATIENT
  Age: 45 Year
  Sex: Female

DRUGS (3)
  1. BYETTA [Suspect]
     Indication: DIABETES MELLITUS NON-INSULIN-DEPENDENT
     Dosage: 8 MCG; BID; SC
     Route: 058
     Dates: start: 20061201, end: 20070127
  2. SLEEPING PILL  NOS [Suspect]
     Indication: SLEEP DISORDER
     Dates: start: 20070101, end: 20070101
  3. LANTUS [Concomitant]

REACTIONS (6)
  - AGITATION [None]
  - BLOOD GLUCOSE INCREASED [None]
  - INJECTION SITE URTICARIA [None]
  - NASOPHARYNGITIS [None]
  - SLEEP DISORDER [None]
  - STRESS [None]
